FAERS Safety Report 20843750 (Version 1)
Quarter: 2022Q2

REPORT INFORMATION
  Report Type: Spontaneous
  Country: CN (occurrence: CN)
  Receive Date: 20220518
  Receipt Date: 20220518
  Transmission Date: 20220721
  Serious: Yes (Hospitalization)
  Sender: FDA-Public Use
  Company Number: CN-PFIZER INC-202200696438

PATIENT
  Age: 46 Year
  Sex: Female
  Weight: 52 kg

DRUGS (2)
  1. METHOTREXATE [Suspect]
     Active Substance: METHOTREXATE
     Indication: Gestational trophoblastic tumour
     Dosage: 20 MG, ONCE 5 DAYS
     Route: 030
     Dates: start: 20220426, end: 20220430
  2. METHOTREXATE [Suspect]
     Active Substance: METHOTREXATE
     Indication: Disease risk factor

REACTIONS (9)
  - Mouth ulceration [Recovering/Resolving]
  - Transaminases abnormal [Recovering/Resolving]
  - White blood cell count decreased [Recovering/Resolving]
  - Erythema [Recovering/Resolving]
  - Skin swelling [Recovering/Resolving]
  - Peripheral swelling [Recovering/Resolving]
  - Skin warm [Recovered/Resolved]
  - Pain of skin [Recovering/Resolving]
  - Skin discomfort [Recovering/Resolving]

NARRATIVE: CASE EVENT DATE: 20220430
